FAERS Safety Report 10244998 (Version 1)
Quarter: 2014Q2

REPORT INFORMATION
  Report Type: Spontaneous
  Country: US (occurrence: US)
  Receive Date: 20140618
  Receipt Date: 20140618
  Transmission Date: 20141212
  Serious: No
  Sender: FDA-Public Use
  Company Number: US-GALDERMA-US14001051

PATIENT
  Age: 66 Year
  Sex: Male

DRUGS (6)
  1. MIRVASO (BRIMONIDINE) TOPICAL GEL, 0.33% [Suspect]
     Indication: FLUSHING
     Dosage: 0.33%
     Route: 061
     Dates: start: 201402, end: 201403
  2. MIRVASO (BRIMONIDINE) TOPICAL GEL, 0.33% [Suspect]
     Dosage: 0.33%
     Route: 061
     Dates: start: 20140320
  3. TESTOSTERONE THERAPY [Concomitant]
     Indication: ASTHENIA
     Dates: start: 2009
  4. TESTOSTERONE THERAPY [Concomitant]
     Route: 061
     Dates: start: 2009
  5. AXE SHOWER GEL [Concomitant]
     Indication: THERAPEUTIC SKIN CARE TOPICAL
     Route: 061
  6. BOOTS NO 7 [Concomitant]
     Indication: EYE DISORDER
     Route: 061

REACTIONS (6)
  - Rebound effect [Recovered/Resolved]
  - Condition aggravated [Recovered/Resolved]
  - Skin discolouration [Recovered/Resolved]
  - Erythema [Recovered/Resolved]
  - Drug effect decreased [Recovered/Resolved]
  - Off label use [Recovered/Resolved]
